FAERS Safety Report 4508273-1 (Version None)
Quarter: 2004Q4

REPORT INFORMATION
  Report Type: 
  Country: None (occurrence: None)
  Receive Date: 20041123
  Receipt Date: 20031211
  Transmission Date: 20050328
  Serious: No
  Sender: FDA-Public Use
  Company Number: US-GLAXOSMITHKLINE-A0442779A

PATIENT
  Sex: Female

DRUGS (1)
  1. WELLBUTRIN [Suspect]
     Indication: ILL-DEFINED DISORDER
     Dosage: 100MG PER DAY
     Route: 048

REACTIONS (4)
  - DYSPEPSIA [None]
  - FLATULENCE [None]
  - MUSCLE CRAMP [None]
  - NAUSEA [None]
